FAERS Safety Report 22587839 (Version 5)
Quarter: 2024Q3

REPORT INFORMATION
  Report Type: Report from Study
  Country: DE (occurrence: DE)
  Receive Date: 20230612
  Receipt Date: 20240722
  Transmission Date: 20241016
  Serious: Yes (Hospitalization, Other)
  Sender: ROCHE
  Company Number: DE-ROCHE-2811899

PATIENT
  Age: 60 Year
  Sex: Female

DRUGS (3)
  1. OCREVUS [Suspect]
     Active Substance: OCRELIZUMAB
     Indication: Primary progressive multiple sclerosis
     Dosage: SUBSEQUENT DOSE 600 MG FOR 190 DAYS
     Route: 042
     Dates: start: 20200220
  2. BOTOX [Suspect]
     Active Substance: ONABOTULINUMTOXINA
     Indication: Stress urinary incontinence
     Dosage: DATE OF TREATMENT ON 08/MAY/2023
     Route: 065
  3. PROPIONIC ACID [Concomitant]
     Active Substance: PROPIONIC ACID

REACTIONS (14)
  - Bladder irritation [Recovered/Resolved]
  - Joint effusion [Recovered/Resolved]
  - Gait disturbance [Not Recovered/Not Resolved]
  - Ligament injury [Not Recovered/Not Resolved]
  - Muscular weakness [Not Recovered/Not Resolved]
  - Cystitis noninfective [Unknown]
  - Blood urine present [Unknown]
  - Stress urinary incontinence [Recovered/Resolved]
  - Cataract [Recovered/Resolved]
  - Gait inability [Recovered/Resolved]
  - Cystitis noninfective [Recovered/Resolved]
  - Spondylitis [Recovered/Resolved]
  - Nerve compression [Recovered/Resolved]
  - Influenza [Recovered/Resolved]

NARRATIVE: CASE EVENT DATE: 20200901
